FAERS Safety Report 5091643-3 (Version None)
Quarter: 2006Q3

REPORT INFORMATION
  Report Type: 
  Country: None (occurrence: None)
  Receive Date: 20060829
  Receipt Date: 20060214
  Transmission Date: 20061208
  Serious: Yes (Hospitalization, Other)
  Sender: FDA-Public Use
  Company Number: JP-BAYER-200610228BYL

PATIENT
  Age: 75 Year
  Sex: Male
  Weight: 50 kg

DRUGS (5)
  1. BAY43-9006 [Suspect]
     Indication: RENAL CELL CARCINOMA STAGE UNSPECIFIED
     Dosage: TOTAL DAILY DOSE: 800 MG
     Route: 048
     Dates: start: 20050617, end: 20060116
  2. GASTER D [Suspect]
     Indication: PROPHYLAXIS AGAINST GASTROINTESTINAL ULCER
     Route: 048
     Dates: start: 20050517, end: 20060213
  3. LOBU [Concomitant]
     Indication: PYREXIA
     Route: 048
     Dates: start: 20050520, end: 20060118
  4. BLOPRESS [Concomitant]
     Indication: HYPERTENSION
     Route: 048
     Dates: start: 20050831, end: 20060108
  5. AMLODIN [Concomitant]
     Indication: HYPERTENSION
     Route: 048
     Dates: start: 20051007, end: 20060127

REACTIONS (6)
  - ANAEMIA [None]
  - ANTIBODY TEST POSITIVE [None]
  - DRUG INEFFECTIVE [None]
  - HAEMOLYTIC ANAEMIA [None]
  - OCCULT BLOOD POSITIVE [None]
  - PYREXIA [None]
